FAERS Safety Report 5588622-6 (Version None)
Quarter: 2008Q1

REPORT INFORMATION
  Report Type: 
  Country: None (occurrence: None)
  Receive Date: 20080111
  Receipt Date: 20071231
  Transmission Date: 20080703
  Serious: Yes (Hospitalization, Other)
  Sender: FDA-Public Use
  Company Number: US-PFIZER INC-2007074879

PATIENT
  Age: 40 Year
  Sex: Female
  Weight: 62 kg

DRUGS (15)
  1. LYRICA [Suspect]
     Indication: NEURALGIA
     Route: 048
     Dates: start: 20070130, end: 20070326
  2. AZITHROMYCIN [Suspect]
  3. HEPARIN [Suspect]
     Indication: THROMBOSIS PROPHYLAXIS
     Route: 058
     Dates: start: 20070320, end: 20070322
  4. CODEINE [Suspect]
  5. HYDROCHLOROTHIAZIDE [Concomitant]
     Dates: start: 20070320, end: 20070321
  6. LISINOPRIL [Concomitant]
     Dates: start: 20070320, end: 20070321
  7. ONDANSETRON [Concomitant]
     Route: 042
     Dates: start: 20070323, end: 20070327
  8. CARVEDILOL [Concomitant]
     Route: 048
     Dates: start: 20070321, end: 20070330
  9. DILTIAZEM HCL [Concomitant]
     Route: 048
     Dates: start: 20070321, end: 20070330
  10. HYDRALAZINE [Concomitant]
     Route: 048
     Dates: start: 20070322, end: 20070330
  11. SUCRALFATE [Concomitant]
     Dates: start: 20070320, end: 20070328
  12. TEGASEROD [Concomitant]
     Dates: start: 20070320, end: 20070328
  13. SERTRALINE [Concomitant]
     Route: 048
     Dates: start: 20070320, end: 20070330
  14. AMBIEN [Concomitant]
  15. GABAPENTIN [Concomitant]
     Dates: start: 20070320, end: 20070330

REACTIONS (9)
  - DISSEMINATED INTRAVASCULAR COAGULATION [None]
  - GASTROINTESTINAL DISORDER [None]
  - HEPARIN-INDUCED THROMBOCYTOPENIA [None]
  - HYPERSENSITIVITY [None]
  - HYPERTENSIVE CRISIS [None]
  - NAUSEA [None]
  - PLATELET COUNT DECREASED [None]
  - PLATELET FACTOR 4 [None]
  - VOMITING [None]
